FAERS Safety Report 5655728-2 (Version None)
Quarter: 2008Q1

REPORT INFORMATION
  Report Type: 
  Country: None (occurrence: None)
  Receive Date: 20080307
  Receipt Date: 20070716
  Transmission Date: 20080703
  Serious: Yes (Death)
  Sender: FDA-Public Use
  Company Number: US-PFIZER INC-2007059591

PATIENT
  Sex: Male
  Weight: 74.8 kg

DRUGS (2)
  1. XALATAN [Suspect]
     Indication: GLAUCOMA
  2. ANTIEPILEPTICS [Concomitant]

REACTIONS (1)
  - DEATH [None]
